FAERS Safety Report 18629951 (Version 1)
Quarter: 2020Q4

REPORT INFORMATION
  Report Type: Spontaneous
  Country: US (occurrence: US)
  Receive Date: 20201217
  Receipt Date: 20201217
  Transmission Date: 20210114
  Serious: No
  Sender: FDA-Public Use
  Company Number: US-PFIZER INC-2020495784

PATIENT
  Age: 33 Year
  Sex: Male
  Weight: 88.45 kg

DRUGS (6)
  1. XELJANZ XR [Suspect]
     Active Substance: TOFACITINIB CITRATE
     Indication: LARGE INTESTINAL HAEMORRHAGE
     Dosage: UNK
     Route: 048
     Dates: start: 202011
  2. XELJANZ XR [Suspect]
     Active Substance: TOFACITINIB CITRATE
     Indication: COLITIS
     Dosage: 22 MG, 1X/DAY
     Route: 048
     Dates: start: 202009, end: 202010
  3. PREDNISONE. [Suspect]
     Active Substance: PREDNISONE
     Indication: LARGE INTESTINAL HAEMORRHAGE
     Dosage: 10 MG, UNK
     Dates: start: 20201214
  4. PREDNISONE. [Suspect]
     Active Substance: PREDNISONE
     Dosage: 20 MG, DAILY (FOR PAST 3WEEKS)
  5. PREDNISONE. [Suspect]
     Active Substance: PREDNISONE
     Indication: COLITIS
     Dosage: 60 MG, UNK
     Dates: start: 2018
  6. PREDNISONE. [Suspect]
     Active Substance: PREDNISONE
     Dosage: 10 MG, DAILY

REACTIONS (4)
  - Acne [Unknown]
  - Off label use [Unknown]
  - Drug ineffective for unapproved indication [Unknown]
  - Erythema [Unknown]
